FAERS Safety Report 7058028-1 (Version None)
Quarter: 2010Q4

REPORT INFORMATION
  Report Type: 
  Country: None (occurrence: None)
  Receive Date: 20101021
  Receipt Date: 20101021
  Transmission Date: 20110411
  Serious: No
  Sender: FDA-Public Use
  Company Number: None

PATIENT
  Age: 50 Year
  Sex: Female
  Weight: 60.782 kg

DRUGS (2)
  1. TRETINOIN [Suspect]
     Indication: CHLOASMA
     Dosage: PEA SIZE 1 TIME AT NIGHT TOP 5 NIGHTS
     Route: 061
     Dates: start: 20101012, end: 20101016
  2. NU-DERM PM 5 BLENDER NONE LISTED OBAGI MEDICAL [Suspect]
     Indication: CHLOASMA
     Dosage: PEA SIZE 1 TIME AT NIGHT TOP 5 NIGHTS
     Route: 061
     Dates: start: 20101012, end: 20101016

REACTIONS (11)
  - BREATH ODOUR [None]
  - DIZZINESS [None]
  - DRUG INEFFECTIVE [None]
  - FATIGUE [None]
  - HEADACHE [None]
  - IMPAIRED WORK ABILITY [None]
  - MALAISE [None]
  - NONSPECIFIC REACTION [None]
  - PAROSMIA [None]
  - SKIN EXFOLIATION [None]
  - THERMAL BURN [None]
